FAERS Safety Report 6865108-X (Version None)
Quarter: 2010Q3

REPORT INFORMATION
  Report Type: 
  Country: None (occurrence: None)
  Receive Date: 20100721
  Receipt Date: 20080411
  Transmission Date: 20110219
  Serious: No
  Sender: FDA-Public Use
  Company Number: US-PFIZER INC-2008032503

PATIENT
  Sex: Male
  Weight: 90.9 kg

DRUGS (5)
  1. CHANTIX [Suspect]
     Indication: SMOKING CESSATION THERAPY
     Dates: start: 20080301
  2. LISINOPRIL [Concomitant]
     Indication: HYPERTENSION
  3. LIPITOR [Concomitant]
     Indication: BLOOD CHOLESTEROL INCREASED
  4. DUONEB [Concomitant]
  5. AZITHROMYCIN [Concomitant]
     Dates: start: 20080403, end: 20080408

REACTIONS (1)
  - RASH [None]
